FAERS Safety Report 10290451 (Version 1)
Quarter: 2014Q3

REPORT INFORMATION
  Report Type: Spontaneous
  Country: IT (occurrence: None)
  Receive Date: 20140708
  Receipt Date: 20140708
  Transmission Date: 20150326
  Serious: Yes (Hospitalization)
  Sender: FDA-Public Use
  Company Number: AUR-APL-2014-07127

PATIENT
  Age: 73 Year
  Sex: Male

DRUGS (2)
  1. GLIMEPIRIDE (GLIMEPIRIDE) [Suspect]
     Active Substance: GLIMEPIRIDE
     Indication: DIABETES MELLITUS
     Dosage: 1 DF, DAILY, UKNOWN
     Dates: start: 20110101, end: 20140614
  2. METFORMIN [Suspect]
     Active Substance: METFORMIN HYDROCHLORIDE
     Indication: DIABETES MELLITUS
     Route: 048
     Dates: start: 20110101, end: 20140614

REACTIONS (2)
  - Hypoglycaemia [None]
  - Presyncope [None]

NARRATIVE: CASE EVENT DATE: 20140614
